FAERS Safety Report 17373946 (Version 2)
Quarter: 2023Q1

REPORT INFORMATION
  Report Type: Spontaneous
  Country: US (occurrence: US)
  Receive Date: 20200205
  Receipt Date: 20230223
  Transmission Date: 20230417
  Serious: Yes (Other)
  Sender: FDA-Public Use
  Company Number: US-JNJFOC-20200204685

PATIENT
  Sex: Male

DRUGS (4)
  1. RISPERDAL [Suspect]
     Active Substance: RISPERIDONE
     Indication: Aggression
     Route: 048
     Dates: start: 2003
  2. RISPERDAL [Suspect]
     Active Substance: RISPERIDONE
     Dosage: ONCE AT BEDTIME
     Route: 048
     Dates: start: 20110629, end: 20130531
  3. RISPERIDONE [Suspect]
     Active Substance: RISPERIDONE
     Indication: Attention deficit hyperactivity disorder
     Route: 048
     Dates: start: 2003
  4. RISPERIDONE [Suspect]
     Active Substance: RISPERIDONE
     Indication: Affective disorder
     Route: 048
     Dates: start: 20110629, end: 20130531

REACTIONS (3)
  - Gynaecomastia [Unknown]
  - Emotional disorder [Unknown]
  - Off label use [Unknown]

NARRATIVE: CASE EVENT DATE: 20030101
